FAERS Safety Report 8359132-8 (Version None)
Quarter: 2012Q2

REPORT INFORMATION
  Report Type: 
  Country: None (occurrence: None)
  Receive Date: 20120511
  Receipt Date: 20120509
  Transmission Date: 20120825
  Serious: Yes (Death)
  Sender: FDA-Public Use
  Company Number: ADR-2010-9827

PATIENT
  Age: 72 Year
  Sex: Female

DRUGS (1)
  1. BACLOFEN [Suspect]
     Indication: MUSCLE SPASTICITY
     Dosage: UNK MCG, DAILY, INTRATHECAL
     Route: 037

REACTIONS (5)
  - HYPOPNOEA [None]
  - CARDIAC ARREST [None]
  - BLOOD PRESSURE DECREASED [None]
  - CYANOSIS [None]
  - CARDIAC FAILURE ACUTE [None]
